FAERS Safety Report 9899414 (Version 4)
Quarter: 2014Q2

REPORT INFORMATION
  Report Type: Spontaneous
  Country: JP (occurrence: JP)
  Receive Date: 20140214
  Receipt Date: 20140506
  Transmission Date: 20141212
  Serious: Yes (Other)
  Sender: FDA-Public Use
  Company Number: JP-PFIZER INC-2014041735

PATIENT
  Age: 31 Year
  Sex: Female

DRUGS (9)
  1. ZITHROMAC SR [Suspect]
     Dosage: UNK
     Route: 048
     Dates: start: 20140207
  2. LOXONIN [Suspect]
     Dosage: UNK
     Route: 048
  3. TRANEXAMIC ACID [Suspect]
     Indication: ANTIINFLAMMATORY THERAPY
     Dosage: 250 MG, 3X/DAY
     Route: 048
     Dates: start: 20140207, end: 20140211
  4. BIOFERMIN R [Concomitant]
     Indication: PROPHYLAXIS AGAINST DIARRHOEA
     Dosage: 3 DF (TABLETS), 1X/DAY
     Route: 048
     Dates: start: 20140207, end: 20140211
  5. CALONAL [Concomitant]
     Indication: ANTIPYRESIS
     Dosage: 200 MG, 3X/DAY
     Route: 048
     Dates: start: 20140207, end: 20140211
  6. CALONAL [Concomitant]
     Indication: ANALGESIC THERAPY
  7. MUCOSAL [Concomitant]
     Indication: PRODUCTIVE COUGH
     Dosage: 15 MG, 3X/DAY
     Route: 048
     Dates: start: 20140207, end: 20140211
  8. TROXSIN [Concomitant]
     Indication: SUPPORTIVE CARE
     Dosage: 100 MG, 3X/DAY
     Route: 048
     Dates: start: 20140207, end: 20140211
  9. AZUNOL [Concomitant]
     Indication: THERAPEUTIC GARGLE
     Dosage: A FEW DROPS/DOSE, A FEW TIMES PER DAY
     Route: 049

REACTIONS (5)
  - Loss of consciousness [Recovered/Resolved]
  - Fall [Recovered/Resolved]
  - Head injury [Recovered/Resolved]
  - Contusion [Recovered/Resolved]
  - Diarrhoea [Recovered/Resolved]
